FAERS Safety Report 9734909 (Version 2)
Quarter: 2013Q4

REPORT INFORMATION
  Report Type: Spontaneous
  Country: US (occurrence: US)
  Receive Date: 20131206
  Receipt Date: 20131231
  Transmission Date: 20140711
  Serious: No
  Sender: FDA-Public Use
  Company Number: US-PFIZER INC-2013348817

PATIENT
  Age: 53 Year
  Sex: Female
  Weight: 53.52 kg

DRUGS (14)
  1. IBUPROFEN [Suspect]
     Indication: PAIN
     Dosage: UNK
     Dates: start: 20121102, end: 201211
  2. OXYCODONE HYDROCHLORIDE [Interacting]
     Indication: PAIN
     Dosage: UNK
     Dates: start: 20121102, end: 201212
  3. CHANTIX [Interacting]
     Indication: SMOKING CESSATION THERAPY
     Dosage: 0.5 MG, UNK (1-2 TIMES EVERY DAY AS DIRECTED)
     Route: 048
     Dates: start: 20131016
  4. CHANTIX [Interacting]
     Indication: TOBACCO ABUSE
     Dosage: UNK
     Dates: start: 20121102, end: 201211
  5. CHANTIX [Interacting]
     Dosage: 1 MG, 2X/DAY (WITH A GLASS OF WATER AFTER MEALS)
     Route: 048
  6. CHANTIX [Interacting]
     Dosage: UNK
     Dates: start: 201311
  7. ALBUTEROL HFA [Concomitant]
     Dosage: UNK 2 PUFF BY INHALATION ROUTE EVERY 4-6 HOURS AS NEEDED.
  8. ALEVE [Concomitant]
     Dosage: 220 MG, AS NEEDED (220 MG, 1-2 BY ORAL ROUTE 2 TIMES EVERY DAY AS NEEDED WITH FOOD)
     Route: 048
  9. LORAZEPAM [Concomitant]
     Dosage: 1 MG, 3X/DAY AS NEEDED
     Route: 048
  10. PROTONIX [Concomitant]
     Dosage: 40 MG, 2X/DAY
     Route: 048
  11. PROZAC [Concomitant]
     Dosage: 20 MG, TAKE 1-2 CAPSULE EVERY DAY IN THE MORNING
     Route: 048
  12. RETIN A [Concomitant]
     Dosage: UNK (EVERY DAY TO THE AFFECTED AREA(S))
     Route: 061
  13. SIMVASTATIN [Concomitant]
     Dosage: 20 MG, 1X/DAY IN THE EVENING
     Route: 048
  14. SPIRIVA [Concomitant]
     Dosage: 18 UG, 1X/DAY ((1 CAPSULE BY INHALATION ROUTE EVERY DAY)

REACTIONS (6)
  - Abnormal dreams [Recovered/Resolved]
  - Nausea [Recovered/Resolved]
  - Headache [Recovered/Resolved]
  - Tinnitus [Recovered/Resolved]
  - Drug interaction [Unknown]
  - Drug ineffective [Unknown]
